FAERS Safety Report 13510741 (Version 1)
Quarter: 2017Q2

REPORT INFORMATION
  Report Type: Spontaneous
  Country: US (occurrence: US)
  Receive Date: 20170503
  Receipt Date: 20170503
  Transmission Date: 20170830
  Serious: Yes (Hospitalization)
  Sender: FDA-Public Use
  Company Number: US-OTSUKA-2017_009814

PATIENT
  Age: 49 Year
  Sex: Female

DRUGS (1)
  1. REXULTI [Suspect]
     Active Substance: BREXPIPRAZOLE
     Indication: HALLUCINATION, AUDITORY
     Dosage: UNK
     Route: 065
     Dates: start: 2017

REACTIONS (2)
  - Disease recurrence [Not Recovered/Not Resolved]
  - Off label use [Unknown]
